FAERS Safety Report 6091576-X (Version None)
Quarter: 2009Q1

REPORT INFORMATION
  Report Type: 
  Country: None (occurrence: None)
  Receive Date: 20090225
  Receipt Date: 20080124
  Transmission Date: 20090719
  Serious: No
  Sender: FDA-Public Use
  Company Number: A0705184A

PATIENT
  Age: 83 Year
  Sex: Male

DRUGS (6)
  1. VALTREX [Suspect]
     Indication: GENITAL HERPES
     Dosage: 1G PER DAY
     Route: 048
     Dates: start: 20000101
  2. ATENOLOL [Concomitant]
  3. WARFARIN SODIUM [Concomitant]
  4. POTASSIUM CHLORIDE [Concomitant]
  5. FUROSEMIDE [Concomitant]
  6. DETROL [Concomitant]

REACTIONS (1)
  - BLISTER [None]
